FAERS Safety Report 10281675 (Version 4)
Quarter: 2015Q1

REPORT INFORMATION
  Report Type: Spontaneous
  Country: US (occurrence: US)
  Receive Date: 20140707
  Receipt Date: 20150303
  Transmission Date: 20150720
  Serious: No
  Sender: FDA-Public Use
  Company Number: US-PFIZER INC-2014185561

PATIENT

DRUGS (1)
  1. CHANTIX [Suspect]
     Active Substance: VARENICLINE TARTRATE
     Dosage: UNK

REACTIONS (6)
  - Nasal dryness [Unknown]
  - Oropharyngeal pain [Unknown]
  - Skin disorder [Unknown]
  - Headache [Unknown]
  - Hypersensitivity [Unknown]
  - Chest discomfort [Unknown]
